FAERS Safety Report 7968091-9 (Version None)
Quarter: 2011Q4

REPORT INFORMATION
  Report Type: 
  Country: None (occurrence: None)
  Receive Date: 20111209
  Receipt Date: 20111124
  Transmission Date: 20120403
  Serious: Yes (Death, Hospitalization)
  Sender: FDA-Public Use
  Company Number: DE-CELGENEUS-062-21660-11113521

PATIENT
  Sex: Female

DRUGS (1)
  1. ABRAXANE [Suspect]
     Dosage: 21.4286 MILLIGRAM
     Route: 065

REACTIONS (3)
  - PULMONARY OEDEMA [None]
  - BRONCHITIS [None]
  - CARDIAC FAILURE [None]
